FAERS Safety Report 20473401 (Version 2)
Quarter: 2022Q2

REPORT INFORMATION
  Report Type: Spontaneous
  Country: US (occurrence: None)
  Receive Date: 20220215
  Receipt Date: 20220421
  Transmission Date: 20220720
  Serious: Yes (Life-Threatening, Hospitalization, Other)
  Sender: FDA-Public Use
  Company Number: US-ROCHE-3020599

PATIENT
  Age: 47 Year
  Sex: Male

DRUGS (1)
  1. OCREVUS [Suspect]
     Active Substance: OCRELIZUMAB
     Indication: Relapsing-remitting multiple sclerosis
     Route: 042
     Dates: start: 20120701

REACTIONS (4)
  - COVID-19 [Unknown]
  - Oxygen saturation decreased [Unknown]
  - Lethargy [Unknown]
  - Epistaxis [Unknown]

NARRATIVE: CASE EVENT DATE: 20220131
